FAERS Safety Report 9206328 (Version 2)
Quarter: 2013Q4

REPORT INFORMATION
  Report Type: Spontaneous
  Country: US (occurrence: None)
  Receive Date: 20130401
  Receipt Date: 20131101
  Transmission Date: 20140711
  Serious: Yes (Hospitalization, Other)
  Sender: FDA-Public Use
  Company Number: ACO_34906_2013

PATIENT
  Sex: Female

DRUGS (3)
  1. AMPYRA (DALFAMPRIDINE) TABLET, 10 MG [Suspect]
     Indication: GAIT DISTURBANCE
     Route: 048
     Dates: start: 201108, end: 201301
  2. LASIX (FUROSEMIDE) [Concomitant]
  3. GABAPENTIN [Suspect]

REACTIONS (8)
  - Malaise [None]
  - Diverticulitis [None]
  - Multiple sclerosis [None]
  - Atrial fibrillation [None]
  - Pulmonary oedema [None]
  - Chronic obstructive pulmonary disease [None]
  - Irritable bowel syndrome [None]
  - Heart rate decreased [None]
